FAERS Safety Report 10076370 (Version 1)
Quarter: 2014Q2

REPORT INFORMATION
  Report Type: Spontaneous
  Country: US (occurrence: None)
  Receive Date: 20140410
  Receipt Date: 20140410
  Transmission Date: 20141212
  Serious: Yes (Other)
  Sender: FDA-Public Use
  Company Number: UTC-046619

PATIENT
  Age: 35 Year
  Sex: Female
  Weight: 59.42 kg

DRUGS (2)
  1. REMODULIN [Suspect]
     Indication: COR PULMONALE CHRONIC
     Dosage: 47.52 UG/KG (0.033 UG/KG, 1 IN 1 MIN),SUBCUTANEOUS
     Route: 058
     Dates: start: 20131210
  2. REVATIO [Concomitant]

REACTIONS (5)
  - Infusion site abscess [None]
  - Injection site discharge [None]
  - Infusion site pain [None]
  - Headache [None]
  - Flushing [None]
